FAERS Safety Report 24087079 (Version 1)
Quarter: 2024Q3

REPORT INFORMATION
  Report Type: Spontaneous
  Country: DE (occurrence: DE)
  Receive Date: 20240713
  Receipt Date: 20240713
  Transmission Date: 20241017
  Serious: Yes (Other)
  Sender: AMGEN
  Company Number: DE-AMGEN-DEUSP2024133828

PATIENT

DRUGS (8)
  1. PREDNISONE [Suspect]
     Active Substance: PREDNISONE
     Indication: Hodgkin^s disease
     Dosage: UNK
     Route: 065
  2. VINCRISTINE [Concomitant]
     Active Substance: VINCRISTINE
     Indication: Hodgkin^s disease
     Dosage: UNK
     Route: 065
  3. ETOPOSIDE [Concomitant]
     Active Substance: ETOPOSIDE
     Indication: Hodgkin^s disease
  4. PREDNISOLONE [Concomitant]
     Active Substance: PREDNISOLONE
     Indication: Hodgkin^s disease
     Dosage: UNK
     Route: 065
  5. DOXORUBICIN [Concomitant]
     Active Substance: DOXORUBICIN
     Indication: Hodgkin^s disease
     Dosage: UNK
     Route: 065
  6. PEMBROLIZUMAB [Concomitant]
     Active Substance: PEMBROLIZUMAB
     Indication: Hodgkin^s disease
     Dosage: UNK UNK, Q3WK
     Route: 065
  7. CYCLOPHOSPHAMIDE [Concomitant]
     Active Substance: CYCLOPHOSPHAMIDE
     Indication: Hodgkin^s disease
     Dosage: UNK
     Route: 065
  8. DACARBAZINE [Concomitant]
     Active Substance: DACARBAZINE
     Indication: Hodgkin^s disease
     Dosage: UNK
     Route: 065

REACTIONS (14)
  - Adverse event [Unknown]
  - Hodgkin^s disease [Unknown]
  - Aspartate aminotransferase increased [Unknown]
  - Immune-mediated hypothyroidism [Unknown]
  - Immune-mediated enterocolitis [Unknown]
  - Immune-mediated lung disease [Unknown]
  - Abdominal pain [Unknown]
  - COVID-19 [Unknown]
  - Cough [Unknown]
  - Pyrexia [Unknown]
  - Therapy cessation [Unknown]
  - Headache [Unknown]
  - Alanine aminotransferase increased [Unknown]
  - Nausea [Unknown]
